FAERS Safety Report 9886204 (Version 2)
Quarter: 2014Q1

REPORT INFORMATION
  Report Type: Report from Study
  Country: DE (occurrence: JP)
  Receive Date: 20140210
  Receipt Date: 20140221
  Transmission Date: 20141002
  Serious: Yes (Hospitalization)
  Sender: FDA-Public Use
  Company Number: JP-FRI-1000053435

PATIENT
  Sex: Male

DRUGS (5)
  1. MEMANTINE [Suspect]
     Indication: DEMENTIA ALZHEIMER^S TYPE
     Dosage: 5 MG
     Route: 048
     Dates: start: 20121019, end: 20121027
  2. MEMANTINE [Suspect]
     Dosage: 10 MG
     Route: 048
     Dates: start: 20121028, end: 20121110
  3. MEMANTINE [Suspect]
     Dosage: 15 MG
     Route: 048
     Dates: start: 20121111, end: 20121124
  4. MEMANTINE [Suspect]
     Dosage: 20 MG
     Route: 048
     Dates: start: 20121125
  5. ARICEPT [Concomitant]
     Indication: DEMENTIA ALZHEIMER^S TYPE
     Dosage: 10 MG
     Route: 048
     Dates: start: 20120615

REACTIONS (1)
  - Femoral neck fracture [Recovering/Resolving]
